FAERS Safety Report 7095349-0 (Version None)
Quarter: 2010Q4

REPORT INFORMATION
  Report Type: 
  Country: None (occurrence: None)
  Receive Date: 20101018
  Receipt Date: 20100607
  Transmission Date: 20110411
  Serious: Yes (Hospitalization, Other)
  Sender: FDA-Public Use
  Company Number: US-WYE-H15515010

PATIENT
  Age: 59 Year
  Sex: Female

DRUGS (14)
  1. PREMARIN [Suspect]
     Indication: PRODUCT USED FOR UNKNOWN INDICATION
     Dosage: 0.9MG; ORAL
     Route: 048
  2. REVLIMID [Suspect]
     Indication: MULTIPLE MYELOMA
     Dosage: 25 MG DAILY FOR 21 DAYS OF EACH 28 DAY CYCLE, THEN 0.9 MG ON UNKNOWN DATE, ORAL
     Route: 048
     Dates: start: 20100201
  3. ASPIRIN [Concomitant]
  4. BONIVA [Concomitant]
  5. ZOLOFT [Concomitant]
  6. PHENOBARBITONE SODIUM (PHENOBARBITAL SODIUM) [Concomitant]
  7. ASCORBIC ACID [Concomitant]
  8. VITAMIN B (VITAMIN B) [Concomitant]
  9. POTASSIUM (POTASSIUM) [Concomitant]
  10. VYTORIN [Concomitant]
  11. MORPHINE SULFATE INJ [Concomitant]
  12. MULTIVITAMINS, PLAIN (MULTIVITAMINS, PLAIN) [Concomitant]
  13. FOLIC ACID [Concomitant]
  14. REMEDEINE (DIHYDROCODEINE/PARACETAMOL) [Concomitant]

REACTIONS (1)
  - CEREBRAL INFARCTION [None]
